FAERS Safety Report 12212878 (Version 1)
Quarter: 2016Q1

REPORT INFORMATION
  Report Type: Spontaneous
  Country: US (occurrence: None)
  Receive Date: 20160325
  Receipt Date: 20160325
  Transmission Date: 20160526
  Serious: Yes (Hospitalization)
  Sender: FDA-Public Use
  Company Number: None

PATIENT
  Age: 68 Year
  Sex: Male
  Weight: 90 kg

DRUGS (1)
  1. GEMCITABINE [Suspect]
     Active Substance: GEMCITABINE\GEMCITABINE HYDROCHLORIDE
     Indication: RHABDOMYOSARCOMA
     Dosage: GEMCITABINE?2130 MG?IV?FREQUENCY [OTHER]
     Route: 042
     Dates: start: 20150831, end: 20150914

REACTIONS (7)
  - Rash [None]
  - Swelling [None]
  - Nephritis [None]
  - Dyspnoea [None]
  - Acute kidney injury [None]
  - Pain [None]
  - Pruritus [None]

NARRATIVE: CASE EVENT DATE: 20150928
